FAERS Safety Report 7231006-5 (Version None)
Quarter: 2011Q1

REPORT INFORMATION
  Report Type: 
  Country: None (occurrence: None)
  Receive Date: 20110118
  Receipt Date: 20110112
  Transmission Date: 20110831
  Serious: Yes (Hospitalization)
  Sender: FDA-Public Use
  Company Number: GB-BRISTOL-MYERS SQUIBB COMPANY-15334428

PATIENT
  Age: 68 Year
  Sex: Female

DRUGS (10)
  1. ERBITUX [Suspect]
     Indication: HEAD AND NECK CANCER
     Dates: start: 20100820, end: 20100924
  2. SIMVASTATIN [Concomitant]
  3. ASPIRIN [Concomitant]
  4. CALCICHEW [Concomitant]
  5. ALENDRONATE [Concomitant]
  6. MORPHINE [Concomitant]
  7. CO-CODAMOL [Concomitant]
  8. LANSOPRAZOLE [Concomitant]
  9. CITALOPRAM [Concomitant]
  10. MINOCYCLINE HCL [Concomitant]

REACTIONS (5)
  - FALL [None]
  - SUBDURAL HAEMATOMA [None]
  - HAEMORRHAGE INTRACRANIAL [None]
  - DIZZINESS [None]
  - PULMONARY EMBOLISM [None]
